FAERS Safety Report 9466289 (Version 1)
Quarter: 2013Q3

REPORT INFORMATION
  Report Type: Spontaneous
  Country: US (occurrence: US)
  Receive Date: 20130820
  Receipt Date: 20130820
  Transmission Date: 20140515
  Serious: No
  Sender: FDA-Public Use
  Company Number: US-TEVA-427173USA

PATIENT
  Age: 84 Year
  Sex: Female

DRUGS (3)
  1. QNASL [Suspect]
     Indication: INCREASED BRONCHIAL SECRETION
  2. ARMOR THYROID [Concomitant]
     Indication: THYROID DISORDER
  3. PREVACID [Concomitant]
     Indication: ABDOMINAL DISCOMFORT

REACTIONS (3)
  - Increased bronchial secretion [Unknown]
  - Malaise [Unknown]
  - Drug effect decreased [Unknown]
